FAERS Safety Report 19788353 (Version 1)
Quarter: 2021Q3

REPORT INFORMATION
  Report Type: Spontaneous
  Country: US (occurrence: US)
  Receive Date: 20210903
  Receipt Date: 20210903
  Transmission Date: 20211014
  Serious: Yes (Hospitalization)
  Sender: FDA-Public Use
  Company Number: US-ELI_LILLY_AND_COMPANY-US202108010336

PATIENT
  Age: 65 Year
  Sex: Female

DRUGS (3)
  1. BASAGLAR [Suspect]
     Active Substance: INSULIN GLARGINE
     Indication: TYPE 1 DIABETES MELLITUS
     Dosage: UNK UNK, UNKNOWN
     Route: 065
  2. NOVOLOG [Concomitant]
     Active Substance: INSULIN ASPART
     Indication: TYPE 1 DIABETES MELLITUS
  3. HYDROCORTISONE. [Suspect]
     Active Substance: HYDROCORTISONE
     Indication: ADRENAL INSUFFICIENCY
     Dosage: UNK, UNKNOWN
     Route: 065

REACTIONS (6)
  - Cataract [Not Recovered/Not Resolved]
  - Adrenal insufficiency [Unknown]
  - Haemoglobin abnormal [Recovering/Resolving]
  - Ulcer haemorrhage [Recovering/Resolving]
  - Myocardial infarction [Recovering/Resolving]
  - Blood glucose increased [Unknown]

NARRATIVE: CASE EVENT DATE: 20210802
